FAERS Safety Report 12897547 (Version 1)
Quarter: 2016Q4

REPORT INFORMATION
  Report Type: Spontaneous
  Country: JP (occurrence: JP)
  Receive Date: 20161031
  Receipt Date: 20161031
  Transmission Date: 20170207
  Serious: Yes (Congenital Anomaly, Other)
  Sender: FDA-Public Use
  Company Number: JP-MYLANLABS-2016M1001433

PATIENT

DRUGS (5)
  1. URSO [Concomitant]
     Active Substance: URSODIOL
     Indication: PRODUCT USED FOR UNKNOWN INDICATION
     Dosage: 50 MG, TID
     Route: 048
     Dates: start: 20140715
  2. PRODEC [Suspect]
     Active Substance: ALLOPURINOL
     Indication: PRODUCT USED FOR UNKNOWN INDICATION
     Route: 065
  3. FLUTAMIDE MYLAN [Suspect]
     Active Substance: FLUTAMIDE
     Indication: PROSTATE CANCER
     Dosage: 125 MG, TID
     Route: 048
     Dates: start: 20131008
  4. FLUTAMIDE MYLAN [Suspect]
     Active Substance: FLUTAMIDE
     Dosage: 125 MG, BID
     Route: 048
     Dates: start: 20150707
  5. FLUTAMIDE MYLAN [Suspect]
     Active Substance: FLUTAMIDE
     Dosage: 125 MG, QD
     Route: 048
     Dates: start: 20160705, end: 20161004

REACTIONS (5)
  - Drug ineffective [Unknown]
  - Hepatic function abnormal [Recovering/Resolving]
  - Hyperhidrosis [Not Recovered/Not Resolved]
  - Drug dose omission [None]
  - Malaise [Not Recovered/Not Resolved]

NARRATIVE: CASE EVENT DATE: 20140715
